FAERS Safety Report 8125674-3 (Version None)
Quarter: 2012Q1

REPORT INFORMATION
  Report Type: 
  Country: None (occurrence: None)
  Receive Date: 20120209
  Receipt Date: 20120207
  Transmission Date: 20120608
  Serious: Yes (Other)
  Sender: FDA-Public Use
  Company Number: US-PFIZER INC-2012033963

PATIENT
  Sex: Female
  Weight: 46.259 kg

DRUGS (3)
  1. CHANTIX [Suspect]
     Indication: SMOKING CESSATION THERAPY
     Dosage: 0.5 MG, 1X/DAY
     Route: 048
     Dates: start: 20110401, end: 20110401
  2. CHANTIX [Suspect]
     Dosage: UNK
     Route: 048
     Dates: start: 20110401, end: 20110501
  3. CHANTIX [Suspect]
     Dosage: 1 MG, 2X/DAY
     Route: 048
     Dates: start: 20120101

REACTIONS (5)
  - MYOCARDIAL INFARCTION [None]
  - ANGINA PECTORIS [None]
  - BREAST PAIN [None]
  - PALPITATIONS [None]
  - CHEST PAIN [None]
